FAERS Safety Report 10265165 (Version 1)
Quarter: 2014Q2

REPORT INFORMATION
  Report Type: Spontaneous
  Country: SE (occurrence: SE)
  Receive Date: 20140627
  Receipt Date: 20140627
  Transmission Date: 20141212
  Serious: Yes (Hospitalization, Other)
  Sender: FDA-Public Use
  Company Number: SE-ASTRAZENECA-2014SE45350

PATIENT
  Age: 21 Year
  Sex: Female

DRUGS (3)
  1. SEROQUEL [Suspect]
     Dosage: QUETIAPIN ACTAVIS
     Dates: start: 20140122, end: 20140611
  2. SEROQUEL [Suspect]
     Route: 048
     Dates: start: 20140601
  3. ACETYLCYSTEINE [Concomitant]

REACTIONS (5)
  - Poisoning [Unknown]
  - Intentional self-injury [Unknown]
  - Abdominal pain [Unknown]
  - Sedation [Unknown]
  - Nausea [Unknown]
